FAERS Safety Report 10807690 (Version 1)
Quarter: 2015Q1

REPORT INFORMATION
  Report Type: Report from Study
  Country: US (occurrence: US)
  Receive Date: 20150217
  Receipt Date: 20150217
  Transmission Date: 20150721
  Serious: No
  Sender: FDA-Public Use
  Company Number: US-ABBVIE-14K-163-1228233-00

PATIENT
  Age: 44 Year
  Sex: Female

DRUGS (5)
  1. HUMIRA [Suspect]
     Active Substance: ADALIMUMAB
     Indication: COLITIS ULCERATIVE
     Dates: start: 20140410, end: 20140410
  2. HUMIRA [Suspect]
     Active Substance: ADALIMUMAB
  3. PREDNISONE. [Suspect]
     Active Substance: PREDNISONE
     Dosage: WOULD CONTINUE TO TITRATE TILL DISCONTINUED
     Dates: start: 20140413
  4. FLUVOXAMINE [Concomitant]
     Active Substance: FLUVOXAMINE
     Indication: ANXIETY
  5. PREDNISONE. [Suspect]
     Active Substance: PREDNISONE
     Indication: PRODUCT USED FOR UNKNOWN INDICATION
     Dates: end: 20140413

REACTIONS (3)
  - Joint swelling [Not Recovered/Not Resolved]
  - Peripheral swelling [Not Recovered/Not Resolved]
  - Oesophageal candidiasis [Recovering/Resolving]

NARRATIVE: CASE EVENT DATE: 20140414
